FAERS Safety Report 9123605 (Version 3)
Quarter: 2013Q2

REPORT INFORMATION
  Report Type: Spontaneous
  Country: US (occurrence: US)
  Receive Date: 20130227
  Receipt Date: 20130617
  Transmission Date: 20140414
  Serious: Yes (Hospitalization, Disabling, Other)
  Sender: FDA-Public Use
  Company Number: US-009507513-1108USA02431

PATIENT
  Sex: Female
  Weight: 54.43 kg

DRUGS (3)
  1. FOSAMAX [Suspect]
     Dosage: 70 MG, QW
     Route: 048
     Dates: start: 20030930, end: 200801
  2. FOSAMAX [Suspect]
     Dosage: 70 MG, QW
     Route: 048
     Dates: start: 200902, end: 20091022
  3. ALENDRONATE SODIUM [Suspect]
     Indication: OSTEOPENIA
     Dosage: 70 MG, UNK
     Route: 048
     Dates: start: 200802, end: 200901

REACTIONS (46)
  - Exostosis of jaw [Unknown]
  - Exostosis [Unknown]
  - Joint injection [Unknown]
  - Abscess oral [Unknown]
  - Rotator cuff syndrome [Unknown]
  - Tendon rupture [Unknown]
  - Cellulitis [Unknown]
  - Convulsion [Unknown]
  - Cerebrovascular accident [Unknown]
  - Oral cavity fistula [Unknown]
  - Abscess jaw [Unknown]
  - Peripheral nerve destruction [Unknown]
  - Osteonecrosis of jaw [Recovered/Resolved]
  - Osteomyelitis [Recovered/Resolved]
  - Arthralgia [Unknown]
  - Osteoarthritis [Unknown]
  - Depression [Unknown]
  - Exposed bone in jaw [Recovered/Resolved]
  - Tooth disorder [Unknown]
  - Anxiety [Unknown]
  - Rheumatoid arthritis [Not Recovered/Not Resolved]
  - Hypertension [Not Recovered/Not Resolved]
  - Radius fracture [Recovering/Resolving]
  - Emphysema [Unknown]
  - Chronic obstructive pulmonary disease [Unknown]
  - Arthritis [Unknown]
  - Dementia [Unknown]
  - Anaemia [Unknown]
  - Peripheral vascular disorder [Unknown]
  - Urinary incontinence [Unknown]
  - Restless legs syndrome [Unknown]
  - Bruxism [Unknown]
  - Exostosis of jaw [Unknown]
  - Osteosclerosis [Unknown]
  - Fall [Unknown]
  - Laceration [Unknown]
  - Cough [Unknown]
  - Osteoarthritis [Unknown]
  - Hyperlipidaemia [Unknown]
  - Arthropathy [Unknown]
  - Tooth disorder [Unknown]
  - Haematoma [Unknown]
  - Cognitive disorder [Unknown]
  - Paraesthesia [Unknown]
  - Balance disorder [Unknown]
  - Gastrooesophageal reflux disease [Unknown]
